FAERS Safety Report 6597782-X (Version None)
Quarter: 2010Q1

REPORT INFORMATION
  Report Type: 
  Country: None (occurrence: None)
  Receive Date: 20100216
  Receipt Date: 20100204
  Transmission Date: 20100710
  Serious: Yes (Hospitalization)
  Sender: FDA-Public Use
  Company Number: 2010000682

PATIENT
  Age: 37 Year
  Sex: Male
  Weight: 104.3273 kg

DRUGS (8)
  1. NUVIGIL [Suspect]
     Indication: CIRCADIAN RHYTHM SLEEP DISORDER
     Dosage: 150 MG (150 MG,1 IN 1 D),ORAL; 250 MG (250 MG,1 IN 1 D),ORAL
     Route: 048
     Dates: start: 20090701, end: 20090901
  2. NUVIGIL [Suspect]
     Indication: CIRCADIAN RHYTHM SLEEP DISORDER
     Dosage: 150 MG (150 MG,1 IN 1 D),ORAL; 250 MG (250 MG,1 IN 1 D),ORAL
     Route: 048
     Dates: start: 20090901, end: 20091231
  3. METFORMIN HCL [Concomitant]
  4. LISINOPRIL [Concomitant]
  5. ALLOPURINOL [Concomitant]
  6. ACTOS [Concomitant]
  7. CRESTOR [Concomitant]
  8. ZETIA [Concomitant]

REACTIONS (4)
  - AMNESIA [None]
  - CONVULSION [None]
  - PSYCHOTIC DISORDER [None]
  - SLEEP DISORDER [None]
